FAERS Safety Report 15048684 (Version 1)
Quarter: 2018Q2

REPORT INFORMATION
  Report Type: Spontaneous
  Country: NL (occurrence: US)
  Receive Date: 20180622
  Receipt Date: 20180622
  Transmission Date: 20180711
  Serious: No
  Sender: FDA-Public Use
  Company Number: NL-PFIZER INC-2018248369

PATIENT
  Age: 65 Year
  Sex: Female

DRUGS (1)
  1. CELEBREX [Suspect]
     Active Substance: CELECOXIB
     Dosage: 200 MG, UNK

REACTIONS (10)
  - Diarrhoea [Unknown]
  - Rhinorrhoea [Unknown]
  - Abdominal distension [Unknown]
  - Oropharyngeal pain [Unknown]
  - Headache [Unknown]
  - Dyspepsia [Unknown]
  - Nausea [Unknown]
  - Insomnia [Unknown]
  - Abdominal pain [Unknown]
  - Flatulence [Unknown]
